FAERS Safety Report 6492707-X (Version None)
Quarter: 2009Q4

REPORT INFORMATION
  Report Type: 
  Country: None (occurrence: None)
  Receive Date: 20091212
  Receipt Date: 20091212
  Transmission Date: 20100525
  Serious: No
  Sender: FDA-Public Use
  Company Number: None

PATIENT
  Sex: Male
  Weight: 83.9154 kg

DRUGS (1)
  1. DILANTIN [Suspect]
     Indication: CONVULSION
     Dosage: 400 MG Q TTS PO
     Route: 048

REACTIONS (2)
  - CONVULSION [None]
  - DRUG LEVEL BELOW THERAPEUTIC [None]
